FAERS Safety Report 10141892 (Version 1)
Quarter: 2014Q2

REPORT INFORMATION
  Report Type: Report from Study
  Country: US (occurrence: US)
  Receive Date: 20140429
  Receipt Date: 20140429
  Transmission Date: 20141212
  Serious: Yes (Hospitalization)
  Sender: FDA-Public Use
  Company Number: US-ACTELION-A-NJ2014-97766

PATIENT
  Age: 68 Year
  Sex: Male

DRUGS (2)
  1. TRACLEER [Suspect]
     Indication: PULMONARY ARTERIAL HYPERTENSION
     Dosage: UNK
     Route: 048
  2. XARELTO [Concomitant]

REACTIONS (6)
  - Pulmonary oedema [Unknown]
  - Fluid retention [Unknown]
  - Localised oedema [Unknown]
  - Peripheral swelling [Unknown]
  - Insomnia [Unknown]
  - Malaise [Unknown]
